FAERS Safety Report 5911799-7 (Version None)
Quarter: 2008Q4

REPORT INFORMATION
  Report Type: 
  Country: None (occurrence: None)
  Receive Date: 20081006
  Receipt Date: 20080918
  Transmission Date: 20090506
  Serious: Yes (Hospitalization)
  Sender: FDA-Public Use
  Company Number: 2008BM000156

PATIENT
  Age: 5 Year
  Sex: Male
  Weight: 11 kg

DRUGS (4)
  1. NAGLAZYME [Suspect]
     Indication: MUCOPOLYSACCHARIDOSIS VI
     Dosage: 10 MG; QW; IVDRIP
     Route: 041
     Dates: start: 20070201
  2. CETIRIZIN [Concomitant]
  3. CEFALEXIN [Concomitant]
  4. OXYGEN [Concomitant]

REACTIONS (2)
  - DISEASE PROGRESSION [None]
  - SLEEP APNOEA SYNDROME [None]
